FAERS Safety Report 23599760 (Version 1)
Quarter: 2024Q1

REPORT INFORMATION
  Report Type: Spontaneous
  Country: IN (occurrence: IN)
  Receive Date: 20240306
  Receipt Date: 20240306
  Transmission Date: 20240410
  Serious: Yes (Hospitalization, Other)
  Sender: FDA-Public Use
  Company Number: IN-NOVITIUMPHARMA-2024INNVP00217

PATIENT
  Age: 23 Year
  Sex: Female

DRUGS (13)
  1. SULFAMETHOXAZOLE\TRIMETHOPRIM [Suspect]
     Active Substance: SULFAMETHOXAZOLE\TRIMETHOPRIM
     Indication: Acanthamoeba infection
     Dosage: 160/800 MG
  2. SULFAMETHOXAZOLE\TRIMETHOPRIM [Suspect]
     Active Substance: SULFAMETHOXAZOLE\TRIMETHOPRIM
     Indication: Encephalitis
  3. DEXAMETHASONE [Suspect]
     Active Substance: DEXAMETHASONE
     Indication: Acanthamoeba infection
     Route: 042
  4. DEXAMETHASONE [Suspect]
     Active Substance: DEXAMETHASONE
     Indication: Encephalitis
  5. PYRAZINAMIDE [Suspect]
     Active Substance: PYRAZINAMIDE
     Indication: Meningitis tuberculous
  6. ISONIAZID [Concomitant]
     Active Substance: ISONIAZID
     Indication: Meningitis tuberculous
  7. RIFAMPIN [Concomitant]
     Active Substance: RIFAMPIN
     Indication: Meningitis tuberculous
  8. ETHAMBUTOL [Concomitant]
     Active Substance: ETHAMBUTOL HYDROCHLORIDE
     Indication: Meningitis tuberculous
  9. PREDNISOLONE [Concomitant]
     Active Substance: PREDNISOLONE
     Indication: Meningitis tuberculous
  10. MILTEFOSINE [Concomitant]
     Active Substance: MILTEFOSINE
     Indication: Acanthamoeba infection
  11. MILTEFOSINE [Concomitant]
     Active Substance: MILTEFOSINE
     Indication: Encephalitis
  12. FLUCONAZOLE [Concomitant]
     Active Substance: FLUCONAZOLE
     Indication: Acanthamoeba infection
  13. FLUCONAZOLE [Concomitant]
     Active Substance: FLUCONAZOLE
     Indication: Encephalitis

REACTIONS (1)
  - Hepatotoxicity [Recovered/Resolved]
